FAERS Safety Report 7873824-6 (Version None)
Quarter: 2011Q4

REPORT INFORMATION
  Report Type: 
  Country: None (occurrence: None)
  Receive Date: 20111030
  Receipt Date: 20110511
  Transmission Date: 20120403
  Serious: No
  Sender: FDA-Public Use
  Company Number: US-AMGEN-USASP2011024440

PATIENT
  Age: 44 Year

DRUGS (4)
  1. NEXIUM [Concomitant]
     Dosage: 20 MG, UNK
  2. ENBREL [Suspect]
     Indication: PRODUCT USED FOR UNKNOWN INDICATION
     Dosage: 50 MG, QWK
     Route: 058
  3. SYNTHROID [Concomitant]
  4. LISINOPRIL [Concomitant]
     Dosage: 5 MG, UNK

REACTIONS (1)
  - INJECTION SITE ERYTHEMA [None]
